FAERS Safety Report 24827146 (Version 2)
Quarter: 2025Q2

REPORT INFORMATION
  Report Type: Spontaneous
  Country: US (occurrence: US)
  Receive Date: 20250109
  Receipt Date: 20250622
  Transmission Date: 20250717
  Serious: No
  Sender: SANOFI AVENTIS
  Company Number: US-SA-2025SA006056

PATIENT
  Age: 74 Year
  Sex: Male

DRUGS (1)
  1. DUPIXENT [Suspect]
     Active Substance: DUPILUMAB
     Indication: Product used for unknown indication
     Route: 058
     Dates: start: 20241223

REACTIONS (3)
  - Injury associated with device [Not Recovered/Not Resolved]
  - Eye contusion [Unknown]
  - Vision blurred [Unknown]

NARRATIVE: CASE EVENT DATE: 20241223
